FAERS Safety Report 4901513-6 (Version None)
Quarter: 2006Q1

REPORT INFORMATION
  Report Type: 
  Country: None (occurrence: None)
  Receive Date: 20060201
  Receipt Date: 20060201
  Transmission Date: 20060701
  Serious: Yes (Death)
  Sender: FDA-Public Use
  Company Number: None

PATIENT
  Age: 54 Year
  Sex: Male
  Weight: 92.9874 kg

DRUGS (14)
  1. MIDOZOLAM 2 MG [Suspect]
     Indication: SEDATION
     Dosage: IVP X 1 ONE TIME
     Route: 042
  2. NAFCILLIN [Concomitant]
  3. GENTAMICIN [Concomitant]
  4. GENTAMICIN [Concomitant]
  5. MORPHINE [Concomitant]
  6. TRAZODONE [Concomitant]
  7. TYLENOL [Concomitant]
  8. RITONAVIR [Concomitant]
  9. ATAZANOVIR [Concomitant]
  10. ABACAVIR/LAMIVUDINE [Concomitant]
  11. ANCEF [Concomitant]
  12. METOPROLOL [Concomitant]
  13. VANC [Concomitant]
  14. PCA [Concomitant]

REACTIONS (3)
  - AGITATION [None]
  - CARDIAC ARREST [None]
  - LOSS OF CONSCIOUSNESS [None]
